FAERS Safety Report 4288518-6 (Version None)
Quarter: 2004Q1

REPORT INFORMATION
  Report Type: 
  Country: None (occurrence: None)
  Receive Date: 20040205
  Receipt Date: 20040121
  Transmission Date: 20041129
  Serious: Yes (Other)
  Sender: FDA-Public Use
  Company Number: GBS040114316

PATIENT
  Age: 55 Year
  Sex: Female
  Weight: 51 kg

DRUGS (2)
  1. EVISTA [Suspect]
     Indication: OSTEOPOROSIS
     Dates: start: 20021007, end: 20021009
  2. CIMETIDINE HCL [Concomitant]

REACTIONS (3)
  - CLUMSINESS [None]
  - CONFUSIONAL STATE [None]
  - DISORIENTATION [None]
